FAERS Safety Report 15760428 (Version 1)
Quarter: 2018Q4

REPORT INFORMATION
  Report Type: Spontaneous
  Country: IN (occurrence: IN)
  Receive Date: 20181224
  Receipt Date: 20181224
  Transmission Date: 20190205
  Serious: Yes (Other)
  Sender: FDA-Public Use
  Company Number: None

PATIENT
  Age: 25 Year
  Sex: Female
  Weight: 58 kg

DRUGS (1)
  1. DOXMINE [Suspect]
     Active Substance: DOXYLAMINE SUCCINATE\PYRIDOXINE HYDROCHLORIDE
     Indication: PREGNANCY
     Dosage: ?          QUANTITY:1 TABLET(S);?
     Route: 048

REACTIONS (2)
  - Vomiting [None]
  - Product solubility abnormal [None]

NARRATIVE: CASE EVENT DATE: 20181224
